FAERS Safety Report 15132989 (Version 1)
Quarter: 2018Q3

REPORT INFORMATION
  Report Type: Spontaneous
  Country: IT (occurrence: IT)
  Receive Date: 20180712
  Receipt Date: 20180712
  Transmission Date: 20181010
  Serious: Yes (Hospitalization)
  Sender: FDA-Public Use
  Company Number: IT-TEVA-2018-IT-923627

PATIENT
  Age: 78 Year
  Sex: Male

DRUGS (7)
  1. GUACETISAL [Concomitant]
     Active Substance: GUACETISAL
     Route: 065
  2. TAPAZOLE [Concomitant]
     Active Substance: METHIMAZOLE
     Route: 065
  3. LYRICA [Concomitant]
     Active Substance: PREGABALIN
     Route: 065
  4. SEREUPIN [Concomitant]
     Active Substance: PAROXETINE HYDROCHLORIDE
     Route: 065
  5. TRIATEC [Concomitant]
     Route: 065
  6. PANTORC [Concomitant]
     Active Substance: PANTOPRAZOLE SODIUM
     Route: 065
  7. LEVOFLOXACIN. [Suspect]
     Active Substance: LEVOFLOXACIN
     Indication: ORCHITIS
     Dosage: 500 MILLIGRAM DAILY;
     Route: 048

REACTIONS (2)
  - Atrial flutter [Unknown]
  - Tachycardia [Unknown]

NARRATIVE: CASE EVENT DATE: 20171231
